FAERS Safety Report 20929553 (Version 1)
Quarter: 2022Q2

REPORT INFORMATION
  Report Type: Spontaneous
  Country: US (occurrence: US)
  Receive Date: 20220608
  Receipt Date: 20220608
  Transmission Date: 20220721
  Serious: Yes (Other)
  Sender: FDA-Public Use
  Company Number: US-ABBVIE-22K-163-4424009-00

PATIENT
  Age: 49 Year
  Sex: Female
  Weight: 67.192 kg

DRUGS (4)
  1. HUMIRA [Suspect]
     Active Substance: ADALIMUMAB
     Indication: Crohn^s disease
     Route: 058
     Dates: start: 202111, end: 202112
  2. HUMIRA [Suspect]
     Active Substance: ADALIMUMAB
     Route: 058
     Dates: start: 202204
  3. COVID-19 VACCINE [Concomitant]
     Indication: COVID-19 immunisation
     Route: 030
     Dates: start: 20210201, end: 20210201
  4. COVID-19 VACCINE [Concomitant]
     Route: 030
     Dates: start: 20210224, end: 20210224

REACTIONS (2)
  - Appendiceal abscess [Unknown]
  - Appendicitis [Unknown]

NARRATIVE: CASE EVENT DATE: 20211111
